FAERS Safety Report 9425855 (Version 2)
Quarter: 2013Q3

REPORT INFORMATION
  Report Type: Spontaneous
  Country: GB (occurrence: GB)
  Receive Date: 20130729
  Receipt Date: 20130802
  Transmission Date: 20140515
  Serious: Yes (Other)
  Sender: FDA-Public Use
  Company Number: GB-WATSON-2013-13378

PATIENT
  Sex: Male
  Weight: 70 kg

DRUGS (5)
  1. CIPROFLOXACIN HYDROCHLORIDE (UNKNOWN) [Suspect]
     Indication: ARTHRALGIA
     Dosage: UNK, UNKNOWN
     Route: 065
  2. MESALAZINE [Suspect]
     Indication: GASTROINTESTINAL INFLAMMATION
     Dosage: UNK
     Route: 065
  3. PREDNISOLONE                       /00016202/ [Concomitant]
     Indication: HYPOTENSION
     Dosage: UNK, UNKNOWN
     Route: 065
  4. TAMSULOSIN [Concomitant]
     Indication: PROSTATISM
     Dosage: 400 MG, TID
     Route: 065
  5. MACROGOL [Concomitant]
     Indication: LAXATIVE SUPPORTIVE CARE
     Route: 065

REACTIONS (2)
  - Tendonitis [Recovering/Resolving]
  - Arthralgia [Recovering/Resolving]
